FAERS Safety Report 7824780-8 (Version None)
Quarter: 2011Q4

REPORT INFORMATION
  Report Type: 
  Country: None (occurrence: None)
  Receive Date: 20111019
  Receipt Date: 20110119
  Transmission Date: 20120403
  Serious: Yes (Hospitalization)
  Sender: FDA-Public Use
  Company Number: US-BRISTOL-MYERS SQUIBB COMPANY-15495278

PATIENT
  Age: 69 Year
  Sex: Female

DRUGS (2)
  1. THYROID TAB [Concomitant]
  2. AVALIDE [Suspect]
     Dosage: FIRST DOSE

REACTIONS (2)
  - YELLOW SKIN [None]
  - SYNCOPE [None]
